FAERS Safety Report 12448153 (Version 1)
Quarter: 2016Q2

REPORT INFORMATION
  Report Type: Spontaneous
  Country: US (occurrence: US)
  Receive Date: 20160608
  Receipt Date: 20160608
  Transmission Date: 20160815
  Serious: No
  Sender: FDA-Public Use
  Company Number: US-BIOGEN-2016BI00242567

PATIENT
  Sex: Female

DRUGS (1)
  1. TECFIDERA [Suspect]
     Active Substance: DIMETHYL FUMARATE
     Indication: MULTIPLE SCLEROSIS
     Route: 065
     Dates: start: 20151002

REACTIONS (5)
  - Abdominal discomfort [Not Recovered/Not Resolved]
  - Heart rate increased [Unknown]
  - Asthenia [Not Recovered/Not Resolved]
  - Flushing [Unknown]
  - Headache [Not Recovered/Not Resolved]
